FAERS Safety Report 8896007 (Version 1)
Quarter: 2012Q4

REPORT INFORMATION
  Report Type: Report from Study
  Country: US (occurrence: US)
  Receive Date: 20121108
  Receipt Date: 20121108
  Transmission Date: 20130627
  Serious: Yes (Death)
  Sender: FDA-Public Use
  Company Number: US-MPIJNJ-2012-07900

PATIENT

DRUGS (3)
  1. VELCADE [Suspect]
     Indication: NON-HODGKIN^S LYMPHOMA
     Dosage: 1.6 mg/m2, Cyclic
     Route: 042
  2. BENDAMUSTINE [Suspect]
     Indication: NON-HODGKIN^S LYMPHOMA
     Dosage: 90 mg/m2, Cyclic
     Route: 042
  3. RITUXIMAB [Suspect]
     Indication: NON-HODGKIN^S LYMPHOMA
     Dosage: 375 mg/m2, Cyclic
     Route: 042

REACTIONS (1)
  - Cerebrovascular accident [Fatal]
